FAERS Safety Report 4768167-3 (Version None)
Quarter: 2005Q3

REPORT INFORMATION
  Report Type: 
  Country: None (occurrence: None)
  Receive Date: 20050908
  Receipt Date: 20050728
  Transmission Date: 20060218
  Serious: Yes (Other)
  Sender: FDA-Public Use
  Company Number: A03200502297

PATIENT
  Age: 40 Year
  Sex: Female
  Weight: 59.8748 kg

DRUGS (9)
  1. ELOXATIN [Suspect]
     Indication: COLON CANCER
     Dosage: 140 MG OTHER - INTRAVENOUS NOS
     Route: 042
     Dates: start: 20050727, end: 20050727
  2. ELOXATIN [Suspect]
     Indication: METASTASES TO LIVER
     Dosage: 140 MG OTHER - INTRAVENOUS NOS
     Route: 042
     Dates: start: 20050727, end: 20050727
  3. ELOXATIN [Suspect]
     Indication: METASTASES TO OVARY
     Dosage: 140 MG OTHER - INTRAVENOUS NOS
     Route: 042
     Dates: start: 20050727, end: 20050727
  4. GRANISETRON [Concomitant]
  5. CALCIUM GLUCONATE [Concomitant]
  6. MAGNESIUM [Concomitant]
  7. DEXAMETHASONE [Concomitant]
  8. FLUOROURACIL [Concomitant]
  9. LEUCOVORIN [Concomitant]

REACTIONS (7)
  - CHEST DISCOMFORT [None]
  - DYSPNOEA [None]
  - ERYTHEMA [None]
  - HYPERSENSITIVITY [None]
  - PRURITUS [None]
  - SWELLING FACE [None]
  - THROAT TIGHTNESS [None]
